FAERS Safety Report 11216070 (Version 2)
Quarter: 2015Q2

REPORT INFORMATION
  Report Type: Spontaneous
  Country: US (occurrence: US)
  Receive Date: 20150624
  Receipt Date: 20150625
  Transmission Date: 20150821
  Serious: No
  Sender: FDA-Public Use
  Company Number: US-009507513-1506USA010678

PATIENT
  Age: 24 Year
  Sex: Female

DRUGS (1)
  1. NUVARING [Suspect]
     Active Substance: ETHINYL ESTRADIOL\ETONOGESTREL
     Indication: CONTRACEPTION
     Dosage: ^PER THE PRESCRIBING INFORMATION^
     Route: 067
     Dates: start: 2012

REACTIONS (2)
  - Vulvovaginal pain [Unknown]
  - Product shape issue [Unknown]

NARRATIVE: CASE EVENT DATE: 20150609
